FAERS Safety Report 8267124-2 (Version None)
Quarter: 2012Q2

REPORT INFORMATION
  Report Type: 
  Country: None (occurrence: None)
  Receive Date: 20120404
  Receipt Date: 20120328
  Transmission Date: 20120825
  Serious: Yes (Hospitalization, Other)
  Sender: FDA-Public Use
  Company Number: VAL_00724_2012

PATIENT
  Age: 23 Year
  Sex: Male

DRUGS (5)
  1. VALPROATE SODIUM [Concomitant]
  2. CLOBAZAM [Concomitant]
  3. CARBAMAZEPINE [Suspect]
     Indication: EPILEPSY
     Dosage: (DF)
  4. ZONISAMIDE [Concomitant]
  5. CLONAZEPAM [Concomitant]

REACTIONS (3)
  - INAPPROPRIATE ANTIDIURETIC HORMONE SECRETION [None]
  - SEPTO-OPTIC DYSPLASIA [None]
  - HYPOGONADISM [None]
